FAERS Safety Report 7634391-5 (Version None)
Quarter: 2011Q3

REPORT INFORMATION
  Report Type: 
  Country: None (occurrence: None)
  Receive Date: 20110725
  Receipt Date: 20110714
  Transmission Date: 20111222
  Serious: Yes (Other)
  Sender: FDA-Public Use
  Company Number: PHHY2010AU34054

PATIENT
  Age: 69 Year
  Sex: Male

DRUGS (5)
  1. CHOLSTAT [Concomitant]
     Indication: HYPERCHOLESTEROLAEMIA
     Dosage: 40 MG, UNK
  2. PLAVIX [Concomitant]
     Indication: TRANSIENT ISCHAEMIC ATTACK
     Dosage: 75 MG/DAY
  3. ANTICOAGULANTS [Concomitant]
     Dosage: UNK
     Route: 048
  4. FAMVIR [Suspect]
     Indication: ORAL HERPES
     Dosage: 500 MG, TID
     Route: 048
     Dates: start: 20100514
  5. PERINDOPRIL [Concomitant]
     Indication: HYPERTENSION
     Dosage: 10 MG/DAY

REACTIONS (8)
  - NASAL MUCOSAL DISORDER [None]
  - EOSINOPHIL COUNT INCREASED [None]
  - BLOOD IMMUNOGLOBULIN E INCREASED [None]
  - PAIN [None]
  - EPISTAXIS [None]
  - HEADACHE [None]
  - ORAL HERPES [None]
  - NAUSEA [None]
